FAERS Safety Report 8472581-2 (Version None)
Quarter: 2012Q2

REPORT INFORMATION
  Report Type: 
  Country: None (occurrence: None)
  Receive Date: 20120627
  Receipt Date: 20120404
  Transmission Date: 20120825
  Serious: Yes (Other)
  Sender: FDA-Public Use
  Company Number: US-AMGEN-USASP2011068227

PATIENT
  Age: 90 Year
  Sex: Female
  Weight: 64.853 kg

DRUGS (10)
  1. PROCRIT [Suspect]
     Indication: ANAEMIA
     Dosage: 3000 IU, 3 TIMES/WK
     Route: 058
     Dates: start: 20111202, end: 20111222
  2. SIMVASTATIN [Concomitant]
     Dosage: 5 MG, UNK
  3. WARFARIN SODIUM [Concomitant]
     Indication: ATRIAL FIBRILLATION
     Dosage: UNK UNK, QD
  4. METOPROLOL SUCCINATE [Concomitant]
     Dosage: 200 MG, UNK
  5. MACRODANTIN [Concomitant]
     Dosage: 100 MG, UNK
     Route: 048
  6. LEVEMIR [Concomitant]
     Dosage: UNK
     Route: 058
  7. LOSARTAN POTASSIUM [Concomitant]
     Dosage: UNK
  8. METFORMIN HCL [Concomitant]
     Dosage: 850 MG, UNK
  9. NOVOLOG [Concomitant]
     Dosage: UNK
     Route: 058
  10. HYDROCHLOROTHIAZIDE [Concomitant]
     Dosage: 12.5 MG, UNK

REACTIONS (2)
  - CEREBROVASCULAR ACCIDENT [None]
  - TRANSIENT ISCHAEMIC ATTACK [None]
